FAERS Safety Report 9632992 (Version 2)
Quarter: 2013Q4

REPORT INFORMATION
  Report Type: Report from Study
  Country: DE (occurrence: DE)
  Receive Date: 20131018
  Receipt Date: 20131106
  Transmission Date: 20140711
  Serious: Yes (Death)
  Sender: FDA-Public Use
  Company Number: DE-ROCHE-1288806

PATIENT
  Age: 72 Year
  Sex: Female

DRUGS (1)
  1. TRASTUZUMAB EMTANSINE [Suspect]
     Indication: BREAST CANCER
     Route: 065

REACTIONS (1)
  - Multi-organ failure [Fatal]
